FAERS Safety Report 14131642 (Version 3)
Quarter: 2018Q1

REPORT INFORMATION
  Report Type: Report from Study
  Country: ES (occurrence: ES)
  Receive Date: 20171026
  Receipt Date: 20180330
  Transmission Date: 20180508
  Serious: Yes (Hospitalization, Other)
  Sender: FDA-Public Use
  Company Number: ES-GILEAD-2017-0300341

PATIENT
  Sex: Female
  Weight: 47 kg

DRUGS (23)
  1. METHADONE [Concomitant]
     Active Substance: METHADONE HYDROCHLORIDE
     Route: 048
  2. TRANXILIUM [Concomitant]
     Active Substance: CLORAZEPATE DIPOTASSIUM
     Route: 048
  3. ISENTRESS [Concomitant]
     Active Substance: RALTEGRAVIR POTASSIUM
     Dosage: UNK
     Route: 048
  4. OMEPRAZOLE. [Concomitant]
     Active Substance: OMEPRAZOLE
     Route: 048
  5. OMEPRAZOLE. [Concomitant]
     Active Substance: OMEPRAZOLE
     Route: 048
  6. ACFOL [Concomitant]
     Active Substance: FOLIC ACID
     Indication: ANAEMIA
     Route: 048
  7. METHADONE [Concomitant]
     Active Substance: METHADONE HYDROCHLORIDE
     Indication: EX-DRUG ABUSER
     Route: 048
  8. LACTULOSE. [Concomitant]
     Active Substance: LACTULOSE
     Indication: HEPATIC CIRRHOSIS
     Route: 048
  9. VITAMIN D                          /00107901/ [Concomitant]
     Active Substance: ERGOCALCIFEROL
     Indication: VITAMIN D DEFICIENCY
     Route: 048
  10. KIVEXA [Concomitant]
     Active Substance: ABACAVIR SULFATE\LAMIVUDINE
     Indication: HIV INFECTION
     Dosage: UNK
     Route: 048
     Dates: start: 20140610
  11. ISENTRESS [Concomitant]
     Active Substance: RALTEGRAVIR POTASSIUM
     Indication: HIV INFECTION
     Dosage: UNK
     Route: 048
     Dates: start: 20140610
  12. SIMEPREVIR [Suspect]
     Active Substance: SIMEPREVIR
     Indication: HEPATITIS C
     Dosage: UNK
     Route: 048
     Dates: start: 20150210, end: 20150313
  13. ADVAGRAF [Concomitant]
     Active Substance: TACROLIMUS
     Route: 048
  14. ACFOL [Concomitant]
     Active Substance: FOLIC ACID
     Route: 048
  15. TRANXILIUM [Concomitant]
     Active Substance: CLORAZEPATE DIPOTASSIUM
     Indication: ANXIETY
     Route: 048
  16. LACTULOSE. [Concomitant]
     Active Substance: LACTULOSE
     Route: 048
  17. KIVEXA [Concomitant]
     Active Substance: ABACAVIR SULFATE\LAMIVUDINE
     Dosage: UNK
     Route: 048
  18. ADALAT [Concomitant]
     Active Substance: NIFEDIPINE
     Route: 048
  19. ADVAGRAF [Concomitant]
     Active Substance: TACROLIMUS
     Indication: RENAL TRANSPLANT
     Route: 048
  20. PREDNISONE. [Concomitant]
     Active Substance: PREDNISONE
     Route: 048
  21. SOFOSBUVIR [Suspect]
     Active Substance: SOFOSBUVIR
     Indication: HEPATITIS C
     Dosage: UNK
     Route: 065
     Dates: start: 20150210
  22. ADALAT [Concomitant]
     Active Substance: NIFEDIPINE
     Indication: HYPERTENSION
     Route: 048
  23. PREDNISONE. [Concomitant]
     Active Substance: PREDNISONE
     Indication: RENAL TRANSPLANT
     Route: 048

REACTIONS (2)
  - Hepatic failure [Recovering/Resolving]
  - Hepatic encephalopathy [Recovered/Resolved]

NARRATIVE: CASE EVENT DATE: 20150313
